FAERS Safety Report 9752454 (Version 1)
Quarter: 2013Q4

REPORT INFORMATION
  Report Type: Spontaneous
  Country: US (occurrence: US)
  Receive Date: 20131213
  Receipt Date: 20131213
  Transmission Date: 20140711
  Serious: Yes (Other)
  Sender: FDA-Public Use
  Company Number: US-AMGEN-USASP2013086615

PATIENT
  Age: 57 Year
  Sex: Female

DRUGS (2)
  1. PROLIA [Suspect]
     Indication: OSTEOPOROSIS POSTMENOPAUSAL
     Dosage: UNK UNK, Q6MO
     Route: 065
     Dates: start: 20131104
  2. ASPIRIN [Concomitant]
     Dosage: 325 MG, BID
     Route: 048

REACTIONS (5)
  - Urinary tract infection [Unknown]
  - Kidney infection [Unknown]
  - Blood urine present [Unknown]
  - Vulvovaginal dryness [Unknown]
  - Back pain [Unknown]
